FAERS Safety Report 18924089 (Version 1)
Quarter: 2021Q1

REPORT INFORMATION
  Report Type: Spontaneous
  Country: CN (occurrence: CN)
  Receive Date: 20210222
  Receipt Date: 20210222
  Transmission Date: 20210420
  Serious: Yes (Other)
  Sender: FDA-Public Use
  Company Number: CN-BRACCO-2021CN00564

PATIENT
  Age: 67 Year
  Sex: Male

DRUGS (6)
  1. HEPARIN [Concomitant]
     Active Substance: HEPARIN SODIUM
  2. NICORANDIL [Concomitant]
     Active Substance: NICORANDIL
  3. ENALAPRILAT. [Concomitant]
     Active Substance: ENALAPRILAT
  4. TICAGRELOR. [Concomitant]
     Active Substance: TICAGRELOR
  5. IOPAMIDOL [Suspect]
     Active Substance: IOPAMIDOL
     Indication: ANGIOCARDIOGRAM
     Dosage: 60 ML, SINGLE
     Dates: start: 20191008, end: 20191008
  6. ASPIRIN [ACETYLSALICYLIC ACID] [Concomitant]
     Active Substance: ASPIRIN

REACTIONS (5)
  - Procalcitonin increased [Recovered/Resolved]
  - Sepsis [Recovered/Resolved]
  - Hypersensitivity [Recovered/Resolved]
  - Pyrexia [Recovered/Resolved]
  - Chills [Recovered/Resolved]

NARRATIVE: CASE EVENT DATE: 20191008
